FAERS Safety Report 16237673 (Version 1)
Quarter: 2019Q2

REPORT INFORMATION
  Report Type: Spontaneous
  Country: US (occurrence: US)
  Receive Date: 20190425
  Receipt Date: 20190425
  Transmission Date: 20190711
  Serious: Yes (Death, Hospitalization, Other)
  Sender: FDA-Public Use
  Company Number: US-MYLANLABS-2019M1037092

PATIENT
  Age: 44 Year
  Sex: Female

DRUGS (1)
  1. WARFARIN [Suspect]
     Active Substance: WARFARIN
     Indication: DEEP VEIN THROMBOSIS
     Dosage: INITIAL ROUTE AND DOSAGE NOT STATED
     Route: 048

REACTIONS (4)
  - Acute kidney injury [Unknown]
  - Skin necrosis [Fatal]
  - Acidosis [Unknown]
  - Septic shock [Fatal]
